FAERS Safety Report 25878951 (Version 1)
Quarter: 2025Q4

REPORT INFORMATION
  Report Type: Spontaneous
  Country: US (occurrence: US)
  Receive Date: 20251003
  Receipt Date: 20251003
  Transmission Date: 20260117
  Serious: No
  Sender: MILLICENT HOLDINGS
  Company Number: US-Millicent Holdings Ltd.-MILL20250291

PATIENT
  Age: 71 Year
  Sex: Female

DRUGS (6)
  1. INTRAROSA [Suspect]
     Active Substance: PRASTERONE
     Indication: Atrophic vulvovaginitis
     Dosage: 1 SUPPOSITORY EACH NIGHT.
     Route: 067
     Dates: start: 202509
  2. INTRAROSA [Suspect]
     Active Substance: PRASTERONE
     Indication: Vulvovaginal erythema
  3. INTRAROSA [Suspect]
     Active Substance: PRASTERONE
     Indication: Vulvovaginal pruritus
  4. INTRAROSA [Suspect]
     Active Substance: PRASTERONE
     Indication: Vulvovaginal discomfort
  5. CORTIZONE 10 [Concomitant]
     Active Substance: HYDROCORTISONE
  6. AQUAPHOR [Concomitant]
     Active Substance: PETROLATUM

REACTIONS (7)
  - Condition aggravated [Not Recovered/Not Resolved]
  - Vulvovaginal erythema [Not Recovered/Not Resolved]
  - Vulvovaginal pruritus [Not Recovered/Not Resolved]
  - Vulvovaginal discomfort [Not Recovered/Not Resolved]
  - Vulvovaginal inflammation [Not Recovered/Not Resolved]
  - Drug ineffective for unapproved indication [Not Recovered/Not Resolved]
  - Off label use [Unknown]

NARRATIVE: CASE EVENT DATE: 20250901
